FAERS Safety Report 20057589 (Version 2)
Quarter: 2021Q4

REPORT INFORMATION
  Report Type: Spontaneous
  Country: IE (occurrence: IE)
  Receive Date: 20211111
  Receipt Date: 20211119
  Transmission Date: 20220303
  Serious: Yes (Other)
  Sender: FDA-Public Use
  Company Number: None

PATIENT
  Sex: Female

DRUGS (2)
  1. IMATINIB [Suspect]
     Active Substance: IMATINIB
     Indication: Product used for unknown indication
     Dosage: 400 MILLIGRAM (AFTER MEAL WITH PLENTY OF WATER) (24 HRS)
     Route: 065
     Dates: start: 20210208
  2. IMATINIB [Suspect]
     Active Substance: IMATINIB
     Dosage: 200 MG (REDUCED THE DOSE TO 200 MG)
     Route: 065
     Dates: start: 20210623

REACTIONS (8)
  - Gait disturbance [Recovered/Resolved]
  - Arthralgia [Recovered/Resolved]
  - Fatigue [Recovered/Resolved]
  - Joint swelling [Recovered/Resolved]
  - Periorbital oedema [Recovered/Resolved]
  - Muscular weakness [Recovered/Resolved]
  - Alopecia [Recovered/Resolved]
  - Taste disorder [Recovered/Resolved]
